FAERS Safety Report 18377745 (Version 1)
Quarter: 2020Q4

REPORT INFORMATION
  Report Type: Report from Study
  Country: IT (occurrence: IT)
  Receive Date: 20201013
  Receipt Date: 20201013
  Transmission Date: 20210114
  Serious: Yes (Other)
  Sender: FDA-Public Use
  Company Number: IT-MYLANLABS-2020M1085173

PATIENT
  Age: 81 Year
  Sex: Female

DRUGS (5)
  1. SINVACOR [Concomitant]
     Active Substance: SIMVASTATIN
     Dosage: UNK
  2. TRITTICO [Suspect]
     Active Substance: TRAZODONE HYDROCHLORIDE
     Indication: DEPRESSION
     Dosage: 20 GTT DROPS, TOTAL
     Route: 048
     Dates: start: 20200617, end: 20200617
  3. DELAPRIDE [Concomitant]
     Active Substance: DELAPRIL HYDROCHLORIDE\INDAPAMIDE
     Dosage: UNK
  4. TAVOR (LORAZEPAM) [Suspect]
     Active Substance: LORAZEPAM
     Indication: INSOMNIA
     Dosage: 7.5 MILLIGRAM, TOTAL
     Route: 048
     Dates: start: 20200617, end: 20200617
  5. OLANZAPINE. [Suspect]
     Active Substance: OLANZAPINE
     Indication: PRODUCT USED FOR UNKNOWN INDICATION
     Dosage: 35 MILLIGRAM, TOTAL
     Route: 048
     Dates: start: 20200617, end: 20200617

REACTIONS (3)
  - Drug abuse [Unknown]
  - Confusional state [Recovering/Resolving]
  - Speech disorder [Recovering/Resolving]

NARRATIVE: CASE EVENT DATE: 20200617
